FAERS Safety Report 9140600 (Version 2)
Quarter: 2013Q2

REPORT INFORMATION
  Report Type: Spontaneous
  Country: US (occurrence: US)
  Receive Date: 20130305
  Receipt Date: 20130605
  Transmission Date: 20140414
  Serious: Yes (Hospitalization)
  Sender: FDA-Public Use
  Company Number: US-GLAXOSMITHKLINE-A0790599A

PATIENT
  Age: 68 Year
  Sex: Male
  Weight: 113.6 kg

DRUGS (1)
  1. AVANDIA [Suspect]
     Indication: TYPE 2 DIABETES MELLITUS
     Dosage: 4MG TWICE PER DAY
     Route: 048
     Dates: start: 200404, end: 20070314

REACTIONS (6)
  - Myocardial infarction [Not Recovered/Not Resolved]
  - Cardiac operation [Unknown]
  - Coronary artery bypass [Unknown]
  - Dizziness [Unknown]
  - Asthenia [Unknown]
  - Gait disturbance [Unknown]
